FAERS Safety Report 10526148 (Version 2)
Quarter: 2014Q4

REPORT INFORMATION
  Report Type: Spontaneous
  Country: US (occurrence: US)
  Receive Date: 20141017
  Receipt Date: 20141126
  Transmission Date: 20150528
  Serious: No
  Sender: FDA-Public Use
  Company Number: US-009507513-1410USA008074

PATIENT
  Age: 34 Year
  Sex: Female
  Weight: 75.28 kg

DRUGS (2)
  1. NEXPLANON [Suspect]
     Active Substance: ETONOGESTREL
     Dosage: FAILED INSERTION
     Route: 059
     Dates: start: 20141009, end: 20141009
  2. NEXPLANON [Suspect]
     Active Substance: ETONOGESTREL
     Dosage: 1 DF (68 MG, ONE ROD INSERTED EVERY THREE YEARS)
     Route: 059
     Dates: start: 20141009

REACTIONS (3)
  - Product quality issue [Unknown]
  - No adverse event [Unknown]
  - Device difficult to use [Recovered/Resolved]

NARRATIVE: CASE EVENT DATE: 20141009
